FAERS Safety Report 21608757 (Version 2)
Quarter: 2024Q2

REPORT INFORMATION
  Report Type: Report from Study
  Country: AU (occurrence: AU)
  Receive Date: 20221117
  Receipt Date: 20240405
  Transmission Date: 20240715
  Serious: Yes (Other)
  Sender: FDA-Public Use
  Company Number: AU-ALLERGAN-2210705US

PATIENT

DRUGS (1)
  1. ACITRETIN [Suspect]
     Active Substance: ACITRETIN
     Indication: Prophylactic chemotherapy
     Route: 065

REACTIONS (3)
  - Peripheral sensory neuropathy [Unknown]
  - Off label use [Unknown]
  - Hallucination, visual [Unknown]
